FAERS Safety Report 5780576-2 (Version None)
Quarter: 2008Q2

REPORT INFORMATION
  Report Type: 
  Country: None (occurrence: None)
  Receive Date: 20080620
  Receipt Date: 20080609
  Transmission Date: 20081010
  Serious: Yes (Hospitalization, Other)
  Sender: FDA-Public Use
  Company Number: US-JNJFOC-20080602416

PATIENT
  Age: 44 Year
  Sex: Male

DRUGS (12)
  1. HALDOL [Interacting]
     Indication: SCHIZOPHRENIA
  2. HALDOL [Interacting]
     Indication: SCHIZOAFFECTIVE DISORDER
  3. GEODON [Suspect]
  4. GEODON [Suspect]
     Indication: SCHIZOPHRENIA
  5. GEODON [Suspect]
     Indication: SCHIZOAFFECTIVE DISORDER
  6. CLOZARIL [Suspect]
     Indication: DRUG USE FOR UNKNOWN INDICATION
  7. LITHIUM CARBONATE [Suspect]
     Indication: DRUG USE FOR UNKNOWN INDICATION
  8. COGENTIN [Interacting]
     Indication: DRUG USE FOR UNKNOWN INDICATION
  9. CLONOPIN [Interacting]
     Indication: DRUG USE FOR UNKNOWN INDICATION
  10. ZYPREXA [Suspect]
     Indication: DRUG USE FOR UNKNOWN INDICATION
  11. ABILIFY [Concomitant]
     Indication: SCHIZOPHRENIA
  12. ABILIFY [Concomitant]
     Indication: SCHIZOAFFECTIVE DISORDER

REACTIONS (15)
  - AGITATION [None]
  - CHEST DISCOMFORT [None]
  - DECREASED ACTIVITY [None]
  - DIZZINESS [None]
  - DRUG INTERACTION [None]
  - DYSPNOEA [None]
  - ELECTROCARDIOGRAM QT PROLONGED [None]
  - HEAD DISCOMFORT [None]
  - HOSPITALISATION [None]
  - INDIFFERENCE [None]
  - PSYCHOTIC DISORDER [None]
  - SOMNOLENCE [None]
  - SPEECH DISORDER [None]
  - TREMOR [None]
  - VERBIGERATION [None]
